FAERS Safety Report 7874982-X (Version None)
Quarter: 2011Q4

REPORT INFORMATION
  Report Type: 
  Country: None (occurrence: None)
  Receive Date: 20111031
  Receipt Date: 20100414
  Transmission Date: 20120403
  Serious: No
  Sender: FDA-Public Use
  Company Number: US-BAYER-201020134NA

PATIENT
  Sex: Male

DRUGS (5)
  1. NEBIVOLOL HCL [Concomitant]
  2. SINGULAIR [Concomitant]
  3. NAPROXEN [Concomitant]
  4. AVELOX [Suspect]
     Indication: BRONCHITIS
     Dosage: 400 MG, QD
     Dates: start: 20090101
  5. AVELOX [Suspect]
     Indication: SKIN INFECTION
     Dosage: 400 MG, QD
     Dates: start: 20090414

REACTIONS (1)
  - RASH [None]
